FAERS Safety Report 6402610-9 (Version None)
Quarter: 2009Q4

REPORT INFORMATION
  Report Type: 
  Country: None (occurrence: None)
  Receive Date: 20091009
  Receipt Date: 20090930
  Transmission Date: 20100525
  Serious: Yes (Death, Hospitalization)
  Sender: FDA-Public Use
  Company Number: ADR34032009

PATIENT
  Age: 25 Year
  Sex: Male

DRUGS (10)
  1. CIPROFLOXACIN [Suspect]
     Indication: LOWER RESPIRATORY TRACT INFECTION
  2. CLARITHROMYCIN [Concomitant]
  3. IBUPROFEN [Concomitant]
  4. LAMIDUVINE [Concomitant]
  5. NEVIRAPINE [Concomitant]
  6. TENOFOVIR [Concomitant]
  7. COMBIVIR (LAMIVUDINE,ZIDUVODINE) [Concomitant]
  8. CO-TRIMAZOLE [Concomitant]
  9. EFAVIRENZ [Concomitant]
  10. LOPERAMIDE [Concomitant]

REACTIONS (2)
  - SEPSIS [None]
  - VANISHING BILE DUCT SYNDROME [None]
